FAERS Safety Report 22217592 (Version 5)
Quarter: 2024Q2

REPORT INFORMATION
  Report Type: Spontaneous
  Country: US (occurrence: US)
  Receive Date: 20230417
  Receipt Date: 20240520
  Transmission Date: 20240716
  Serious: No
  Sender: FDA-Public Use
  Company Number: US-PFIZER INC-PV202300067427

PATIENT
  Age: 68 Year
  Sex: Female
  Weight: 70 kg

DRUGS (1)
  1. ENBREL [Suspect]
     Active Substance: BENZYL ALCOHOL\ETANERCEPT
     Indication: Ankylosing spondylitis
     Dosage: UNK
     Route: 058
     Dates: start: 2020

REACTIONS (3)
  - Drug hypersensitivity [Recovered/Resolved]
  - Rash [Recovered/Resolved]
  - Rubber sensitivity [Recovered/Resolved]
